FAERS Safety Report 24440515 (Version 2)
Quarter: 2024Q4

REPORT INFORMATION
  Report Type: Other
  Country: US (occurrence: US)
  Receive Date: 20241016
  Receipt Date: 20241108
  Transmission Date: 20250115
  Serious: Yes (Hospitalization)
  Sender: INTERCEPT PHARMACEUTICALS
  Company Number: US-INTERCEPT-PM2024002008

PATIENT
  Age: 47 Year
  Sex: Female
  Weight: 39.909 kg

DRUGS (21)
  1. OCALIVA [Suspect]
     Active Substance: OBETICHOLIC ACID
     Indication: Primary biliary cholangitis
     Dosage: 5 MILLIGRAM, QD
     Route: 048
     Dates: start: 20161122, end: 202402
  2. OCALIVA [Suspect]
     Active Substance: OBETICHOLIC ACID
     Indication: Product use in unapproved indication
     Dosage: 5 MILLIGRAM, QD
     Route: 048
     Dates: start: 20241001
  3. AZITHROMYCIN [Concomitant]
     Active Substance: AZITHROMYCIN
  4. BREO ELLIPTA [Concomitant]
     Active Substance: FLUTICASONE FUROATE\VILANTEROL TRIFENATATE
     Dosage: 1 PUFF, QD
     Route: 048
     Dates: start: 20220916
  5. CEFDINIR [Concomitant]
     Active Substance: CEFDINIR
  6. DOXYCYCLINE [Concomitant]
     Active Substance: DOXYCYCLINE
  7. FLUCONAZOLE [Concomitant]
     Active Substance: FLUCONAZOLE
     Dosage: UNK
     Dates: start: 20230725
  8. LEVOTHYROXINE [Concomitant]
     Active Substance: LEVOTHYROXINE
     Dosage: 25 MICROGRAM, QD
     Route: 048
     Dates: start: 20230712
  9. METHYLPREDNISOLONE [Concomitant]
     Active Substance: METHYLPREDNISOLONE
  10. MUPIROCIN [Concomitant]
     Active Substance: MUPIROCIN
     Dosage: 2% TOPICAL SMALL AMOUNT APPLY, TID
  11. OFLOXACIN [Concomitant]
     Active Substance: OFLOXACIN
  12. OMEPRAZOLE [Concomitant]
     Active Substance: OMEPRAZOLE
     Dosage: 20 MILLIGRAM, QD
     Route: 048
     Dates: start: 20230829
  13. PROLIA [Concomitant]
     Active Substance: DENOSUMAB
     Dosage: 1 ML EVERY 6 MONTHS
     Route: 058
     Dates: start: 20230130
  14. TERCONAZOLE [Concomitant]
     Active Substance: TERCONAZOLE
  15. TRAMADOL HCL [Concomitant]
     Active Substance: TRAMADOL HYDROCHLORIDE
  16. VITAMIN D3 [Concomitant]
     Active Substance: CHOLECALCIFEROL
  17. ALBUTEROL SULFATE [Concomitant]
     Active Substance: ALBUTEROL SULFATE
     Indication: Pain
     Dosage: 2 PUFFS, EVERY 4 TO 6 HOURS AS NEEDED
     Route: 048
     Dates: start: 20230724
  18. ALBUTEROL SULFATE [Concomitant]
     Active Substance: ALBUTEROL SULFATE
     Dosage: 2 PUFFS, EVERY 4 TO 6 HOURS AS NEEDED
     Route: 048
     Dates: start: 20230831
  19. POLYETHYLENE GLYCOL 3350 [Concomitant]
     Active Substance: POLYETHYLENE GLYCOL 3350
     Dosage: 17 GRAMS IN LIQUID EVERY DAY AS NEEDED
     Route: 048
     Dates: start: 20230823
  20. VALACYCLOVIR [Concomitant]
     Active Substance: VALACYCLOVIR HYDROCHLORIDE
     Dosage: 500 MILLIGRAM, QD
     Route: 048
     Dates: start: 20230621
  21. ALBUTEROL SULFATE [Concomitant]
     Active Substance: ALBUTEROL SULFATE
     Dosage: 1 VIAL VIA NEBULIZER EVERY 4 TO 6 HOURS AS NEEDED
     Dates: start: 20230802

REACTIONS (5)
  - Hepatomegaly [Not Recovered/Not Resolved]
  - Dehydration [Unknown]
  - Unevaluable investigation [Recovered/Resolved]
  - Illness [Unknown]
  - Therapy interrupted [Recovered/Resolved]

NARRATIVE: CASE EVENT DATE: 20240201
